FAERS Safety Report 4446703-4 (Version None)
Quarter: 2004Q3

REPORT INFORMATION
  Report Type: 
  Country: None (occurrence: None)
  Receive Date: 20040908
  Receipt Date: 20040827
  Transmission Date: 20050211
  Serious: Yes (Hospitalization)
  Sender: FDA-Public Use
  Company Number: FRP04000719

PATIENT
  Age: 86 Year
  Sex: Female

DRUGS (11)
  1. DIDRONEL [Suspect]
     Dosage: ORAL
     Route: 048
     Dates: end: 20040621
  2. FUNGIZONE [Suspect]
     Dates: end: 20040621
  3. NEO-MERCAZOLE TAB [Suspect]
     Dosage: ORAL
     Route: 048
     Dates: end: 20040621
  4. OXAZEPAM [Suspect]
     Dosage: ORAL
     Route: 048
     Dates: start: 20040606, end: 20040621
  5. RISPERDAL [Concomitant]
     Dosage: 0.1 ML, DAILY, ORAL
     Route: 048
     Dates: start: 20040606, end: 20040621
  6. RISPERDAL [Suspect]
     Indication: DEMENTIA
     Dosage: 0.1 ML, DAILY, ORAL
     Route: 048
     Dates: start: 20040606, end: 20040621
  7. LASIX [Suspect]
     Dosage: ORAL
     Route: 048
     Dates: end: 20040625
  8. PREVISCAN (FLUINDIONE) [Concomitant]
  9. ZESTRIL [Concomitant]
  10. THEOSTAT(THEOPHYLLINE) [Concomitant]
  11. BECLOMETHASONE DIPROPIONATE [Concomitant]

REACTIONS (2)
  - COMA [None]
  - DEPRESSED LEVEL OF CONSCIOUSNESS [None]
